FAERS Safety Report 6102850-2 (Version None)
Quarter: 2009Q1

REPORT INFORMATION
  Report Type: 
  Country: None (occurrence: None)
  Receive Date: 20090304
  Receipt Date: 20090225
  Transmission Date: 20090719
  Serious: Yes (Hospitalization)
  Sender: FDA-Public Use
  Company Number: US-GENENTECH-278235

PATIENT
  Sex: Female

DRUGS (11)
  1. XOLAIR [Suspect]
     Indication: DRUG USE FOR UNKNOWN INDICATION
  2. SINGULAIR [Suspect]
     Indication: ASTHMA
     Dosage: 25 MG, UNK
  3. ADVAIR HFA [Suspect]
     Indication: ASTHMA
  4. PREDNISONE [Suspect]
     Indication: ASTHMA
     Dosage: 20 MG, UNK
  5. PROAIR HFA [Suspect]
     Indication: ASTHMA
     Dosage: 18 MG, UNK
  6. ALBUTEROL SULFATE [Suspect]
     Indication: ASTHMA
     Dosage: 0.083 %, UNK
  7. IPRATROPIUM BROMIDE [Suspect]
     Indication: ASTHMA
     Dosage: 2 %, UNK
  8. OXYGEN [Suspect]
     Indication: ASTHMA
     Dosage: 2 L, UNK
  9. SALINE [Suspect]
     Indication: ASTHMA
     Dosage: UNK
  10. PROMETHAZINE W/ CODEINE [Suspect]
     Indication: ASTHMA
  11. STEROIDS (UNK INGREDIENTS) [Suspect]
     Indication: ASTHMA

REACTIONS (4)
  - BLOOD POTASSIUM DECREASED [None]
  - DRUG INEFFECTIVE [None]
  - OVERDOSE [None]
  - OXYGEN SATURATION DECREASED [None]
